FAERS Safety Report 9281444 (Version 1)
Quarter: 2013Q2

REPORT INFORMATION
  Report Type: Spontaneous
  Country: US (occurrence: US)
  Receive Date: 20130509
  Receipt Date: 20130509
  Transmission Date: 20140414
  Serious: Yes (Other)
  Sender: FDA-Public Use
  Company Number: US-BAXTER-2013BAX016655

PATIENT
  Age: 58 Year
  Sex: Female

DRUGS (5)
  1. DOBUTAMINE HYDROCHLORIDE IN 5% DEXTROSE INJECTION [Suspect]
     Indication: STRESS ECHOCARDIOGRAM
     Route: 042
  2. DOBUTAMINE HYDROCHLORIDE IN 5% DEXTROSE INJECTION [Suspect]
     Indication: OFF LABEL USE
  3. ATROPINE [Suspect]
     Indication: PRODUCT USED FOR UNKNOWN INDICATION
     Route: 042
  4. DEFINITY [Suspect]
     Indication: PRODUCT USED FOR UNKNOWN INDICATION
     Route: 040
  5. SALINE [Concomitant]
     Indication: PRODUCT USED FOR UNKNOWN INDICATION

REACTIONS (3)
  - Ventricular extrasystoles [Recovered/Resolved]
  - Convulsion [Recovered/Resolved]
  - Feeling jittery [Unknown]
